FAERS Safety Report 6158387-8 (Version None)
Quarter: 2009Q2

REPORT INFORMATION
  Report Type: 
  Country: None (occurrence: None)
  Receive Date: 20090417
  Receipt Date: 20090408
  Transmission Date: 20091009
  Serious: Yes (Hospitalization)
  Sender: FDA-Public Use
  Company Number: AU-ASTRAZENECA-2008AP01751

PATIENT
  Age: 61 Year
  Sex: Male
  Weight: 80 kg

DRUGS (6)
  1. CRESTOR [Suspect]
     Indication: HYPERLIPIDAEMIA
     Dosage: 12 TABLETS AT ONCE
     Route: 048
     Dates: start: 20080305, end: 20080305
  2. CRESTOR [Suspect]
     Dosage: 15 TABLETS
     Route: 048
     Dates: start: 20080407
  3. LIPIDIL [Suspect]
     Indication: HYPERLIPIDAEMIA
     Dosage: 24 TABLETS AT ONCE
     Route: 048
     Dates: start: 20080305, end: 20080305
  4. ANHIBA [Suspect]
     Indication: PAIN
     Dosage: 15 TABLET TABLETS AT ONCE
     Route: 048
     Dates: start: 20080305, end: 20080305
  5. NUROFEN [Suspect]
     Indication: PAIN
     Dosage: 5 TABLETS
     Route: 048
     Dates: start: 20080305, end: 20080305
  6. SOLPRIN [Concomitant]
     Indication: MYOCARDIAL ISCHAEMIA
     Route: 048

REACTIONS (4)
  - BLOOD CREATINE PHOSPHOKINASE INCREASED [None]
  - GAMMA-GLUTAMYLTRANSFERASE INCREASED [None]
  - OVERDOSE [None]
  - RENAL IMPAIRMENT [None]
